FAERS Safety Report 25533891 (Version 1)
Quarter: 2025Q3

REPORT INFORMATION
  Report Type: Spontaneous
  Country: US (occurrence: None)
  Receive Date: 20250708
  Receipt Date: 20250708
  Transmission Date: 20251021
  Serious: Yes (Other)
  Sender: FDA-CTU
  Company Number: None

PATIENT
  Age: 36 Year
  Sex: Female
  Weight: 62.1 kg

DRUGS (1)
  1. GADOLINIUM [Suspect]
     Active Substance: GADOLINIUM
     Dates: start: 20250708, end: 20250708

REACTIONS (3)
  - Throat irritation [None]
  - Suffocation feeling [None]
  - Infusion related reaction [None]

NARRATIVE: CASE EVENT DATE: 20250708
